FAERS Safety Report 4293235-2 (Version None)
Quarter: 2004Q1

REPORT INFORMATION
  Report Type: 
  Country: None (occurrence: None)
  Receive Date: 20040126
  Receipt Date: 20031014
  Transmission Date: 20041129
  Serious: No
  Sender: FDA-Public Use
  Company Number: USA031049890

PATIENT
  Age: 55 Year
  Sex: Female

DRUGS (4)
  1. FORTEO [Suspect]
     Indication: OSTEOPOROSIS
     Dates: start: 20030914
  2. FOSAMAX [Concomitant]
  3. ACTONEL [Concomitant]
  4. ELAVIL [Concomitant]

REACTIONS (5)
  - ABDOMINAL PAIN LOWER [None]
  - DIZZINESS [None]
  - EYE DISORDER [None]
  - FEELING ABNORMAL [None]
  - NAUSEA [None]
